FAERS Safety Report 12177694 (Version 1)
Quarter: 2016Q1

REPORT INFORMATION
  Report Type: Other
  Country: NO (occurrence: NO)
  Receive Date: 20160315
  Receipt Date: 20160315
  Transmission Date: 20160526
  Serious: No
  Sender: FDA-Public Use
  Company Number: NO-LUPIN PHARMACEUTICALS INC.-2016-00217

PATIENT
  Age: 16 Year
  Sex: Male

DRUGS (1)
  1. SERTRALINE [Suspect]
     Active Substance: SERTRALINE HYDROCHLORIDE
     Indication: OBSESSIVE-COMPULSIVE DISORDER
     Dosage: 125 MG
     Route: 065

REACTIONS (3)
  - Restlessness [Unknown]
  - Fatigue [Unknown]
  - Headache [Unknown]
